FAERS Safety Report 6552014-3 (Version None)
Quarter: 2010Q1

REPORT INFORMATION
  Report Type: 
  Country: None (occurrence: None)
  Receive Date: 20100126
  Receipt Date: 20100115
  Transmission Date: 20100710
  Serious: Yes (Death)
  Sender: FDA-Public Use
  Company Number: GB-B.I. PHARMACEUTICALS,INC./RIDGEFIELD-2008-UK-01236UK

PATIENT
  Age: 3 Month
  Sex: Male
  Weight: 3.2 kg

DRUGS (8)
  1. VIRAMUNE [Suspect]
     Indication: ANTIVIRAL PROPHYLAXIS
     Route: 064
  2. VIRAMUNE [Suspect]
     Indication: HIV INFECTION
     Route: 064
  3. COMBIVIR [Suspect]
     Indication: HIV INFECTION
     Route: 064
  4. KALETRA [Suspect]
     Indication: HIV INFECTION
     Route: 064
  5. LAMIVUDINE [Suspect]
     Indication: ANTIVIRAL PROPHYLAXIS
     Route: 064
  6. SEPTRIN [Suspect]
     Indication: DRUG USE FOR UNKNOWN INDICATION
  7. ZIDOVUDINE [Suspect]
     Indication: ANTIVIRAL PROPHYLAXIS
     Route: 064
  8. ZIDOVUDINE [Suspect]
     Indication: HIV INFECTION
     Route: 064

REACTIONS (2)
  - DEATH [None]
  - DRUG EXPOSURE DURING PREGNANCY [None]
